FAERS Safety Report 11747181 (Version 1)
Quarter: 2015Q4

REPORT INFORMATION
  Report Type: Spontaneous
  Country: US (occurrence: US)
  Receive Date: 20151117
  Receipt Date: 20151117
  Transmission Date: 20160304
  Serious: Yes (Death, Hospitalization, Other)
  Sender: FDA-Public Use
  Company Number: US-BRISTOL-MYERS SQUIBB COMPANY-BMS-2015-076420

PATIENT
  Sex: Female

DRUGS (3)
  1. COUMADIN [Suspect]
     Active Substance: WARFARIN SODIUM
     Indication: THROMBOSIS
     Dosage: 5 MG, UNK
     Route: 065
     Dates: start: 20140708
  2. SUCRALFATE. [Interacting]
     Active Substance: SUCRALFATE
     Indication: PRODUCT USED FOR UNKNOWN INDICATION
     Dosage: 1 UNK, UNK
     Route: 065
  3. COUMADIN [Interacting]
     Active Substance: WARFARIN SODIUM
     Dosage: 1 MG, UNK
     Route: 065
     Dates: start: 20140708

REACTIONS (3)
  - Cerebrovascular accident [Unknown]
  - Surgery [Not Recovered/Not Resolved]
  - Cerebral haemorrhage [Fatal]
